FAERS Safety Report 5416413-5 (Version None)
Quarter: 2007Q3

REPORT INFORMATION
  Report Type: 
  Country: None (occurrence: None)
  Receive Date: 20070816
  Receipt Date: 20070503
  Transmission Date: 20080115
  Serious: No
  Sender: FDA-Public Use
  Company Number: US-KINGPHARMUSA00001-K200700553

PATIENT

DRUGS (2)
  1. BREVITAL SODIUM INJ [Suspect]
     Indication: GENERAL ANAESTHESIA
     Dates: start: 20070425, end: 20070425
  2. ^MANY^ UNSPECIFIED MEDICATIONS [Concomitant]

REACTIONS (1)
  - HEADACHE [None]
